FAERS Safety Report 4992586-3 (Version None)
Quarter: 2006Q1

REPORT INFORMATION
  Report Type: 
  Country: None (occurrence: None)
  Receive Date: 20060313
  Receipt Date: 20051031
  Transmission Date: 20060701
  Serious: No
  Sender: FDA-Public Use
  Company Number: 2005-BP-14000BP

PATIENT
  Age: 67 Year
  Sex: Female

DRUGS (16)
  1. SPIRIVA [Suspect]
     Indication: CHRONIC OBSTRUCTIVE PULMONARY DISEASE
     Dosage: 18 MCG(18 MCG,QD),IH
     Dates: start: 20040710
  2. SPIRIVA [Suspect]
  3. SPIRIVA [Suspect]
  4. SPIRIVA [Suspect]
  5. ADVAIR (SERETIDE) [Concomitant]
  6. ALBUTEROL [Concomitant]
  7. BUMETANIDE [Concomitant]
  8. VARIOUS OTHER MEDICATIONS [Concomitant]
  9. METFORMIN [Concomitant]
  10. NEURONTIN [Concomitant]
  11. ACIPHEX [Concomitant]
  12. PLAVIX [Concomitant]
  13. SYNTHROID [Concomitant]
  14. URISEPT (PIROMIDIC ACID) [Concomitant]
  15. MIACALCIN [Concomitant]
  16. CARAFATE [Concomitant]

REACTIONS (2)
  - DYSPHONIA [None]
  - EMPHYSEMA [None]
